FAERS Safety Report 9856193 (Version 1)
Quarter: 2013Q4

REPORT INFORMATION
  Report Type: Spontaneous
  Country: US (occurrence: None)
  Receive Date: 20131226
  Receipt Date: 20131226
  Transmission Date: 20140711
  Serious: Yes (Other)
  Sender: FDA-Public Use
  Company Number: PHEH2013US014656

PATIENT
  Age: 68 Year
  Sex: Male

DRUGS (1)
  1. GILENYA (FINGOLIMIOD) CAPSULE, 0.5MG [Suspect]
     Indication: MULTIPLE SCLEROSIS
     Route: 048
     Dates: start: 201208, end: 201302

REACTIONS (1)
  - CD8 lymphocytes decreased [None]
